FAERS Safety Report 10298395 (Version 4)
Quarter: 2014Q3

REPORT INFORMATION
  Report Type: Spontaneous
  Country: US (occurrence: US)
  Receive Date: 20140711
  Receipt Date: 20140814
  Transmission Date: 20150326
  Serious: Yes (Hospitalization, Disabling, Other)
  Sender: FDA-Public Use
  Company Number: US-009507513-1006USA03827

PATIENT
  Sex: Female
  Weight: 72.56 kg

DRUGS (5)
  1. FOSAMAX [Suspect]
     Active Substance: ALENDRONATE SODIUM
     Dosage: UNK
     Route: 048
     Dates: start: 1997, end: 20070503
  2. FOSAMAX [Suspect]
     Active Substance: ALENDRONATE SODIUM
     Indication: OSTEOPOROSIS
     Dosage: 10 MG, QD
     Route: 048
     Dates: start: 19990923
  3. FOSAMAX [Suspect]
     Active Substance: ALENDRONATE SODIUM
     Dosage: 70 MG, QW
     Route: 048
     Dates: start: 20010116, end: 20020420
  4. FOSAMAX PLUS D [Suspect]
     Active Substance: ALENDRONATE SODIUM\CHOLECALCIFEROL
     Dosage: 70 MG/5600 IU, QW
     Route: 048
     Dates: start: 2005, end: 20080628
  5. FOSAMAX [Suspect]
     Active Substance: ALENDRONATE SODIUM
     Indication: OSTEOPOROSIS PROPHYLAXIS
     Dosage: 70 MG, QW
     Route: 048
     Dates: start: 20031125, end: 20070503

REACTIONS (56)
  - Ecchymosis [Unknown]
  - Goitre [Unknown]
  - Jaw disorder [Unknown]
  - Weight increased [Unknown]
  - Cystitis [Unknown]
  - Lower limb fracture [Unknown]
  - Breast calcifications [Unknown]
  - Sciatica [Unknown]
  - Gastrooesophageal reflux disease [Unknown]
  - Adverse event [Unknown]
  - Choroidal neovascularisation [Not Recovered/Not Resolved]
  - Diverticulum intestinal [Unknown]
  - Foot deformity [Unknown]
  - Inner ear disorder [Unknown]
  - Pollakiuria [Unknown]
  - Fracture nonunion [Unknown]
  - Hip fracture [Unknown]
  - Metastasis [Unknown]
  - Autoimmune thyroiditis [Unknown]
  - Reflux laryngitis [Unknown]
  - Transient ischaemic attack [Unknown]
  - Aortic valve calcification [Unknown]
  - Haematochezia [Recovered/Resolved]
  - Post procedural haemorrhage [Unknown]
  - Osteopenia [Unknown]
  - Intraductal proliferative breast lesion [Unknown]
  - Fall [Unknown]
  - Rotator cuff syndrome [Unknown]
  - Chest pain [Unknown]
  - Tooth disorder [Unknown]
  - Chest pain [Unknown]
  - Eye irritation [Unknown]
  - Increased tendency to bruise [Unknown]
  - Nasal septum deviation [Unknown]
  - Nasal turbinate hypertrophy [Unknown]
  - Seborrhoeic keratosis [Unknown]
  - Macular degeneration [Unknown]
  - Anaemia postoperative [Recovered/Resolved]
  - Pain in extremity [Unknown]
  - Dysphonia [Unknown]
  - Spinal osteoarthritis [Unknown]
  - Spinal osteoarthritis [Unknown]
  - Dizziness [Unknown]
  - Pain in extremity [Unknown]
  - Femur fracture [Not Recovered/Not Resolved]
  - Submandibular mass [Unknown]
  - Upper-airway cough syndrome [Unknown]
  - Retinal detachment [Unknown]
  - Large intestine polyp [Unknown]
  - Fibroadenoma of breast [Unknown]
  - Thyroid neoplasm [Unknown]
  - Hypokalaemia [Recovered/Resolved]
  - Osteoporosis [Unknown]
  - Hypotension [Not Recovered/Not Resolved]
  - Tooth disorder [Unknown]
  - Cardiac murmur [Unknown]

NARRATIVE: CASE EVENT DATE: 1997
